FAERS Safety Report 8232890-9 (Version None)
Quarter: 2012Q1

REPORT INFORMATION
  Report Type: 
  Country: None (occurrence: None)
  Receive Date: 20120324
  Receipt Date: 20120314
  Transmission Date: 20120608
  Serious: Yes (Other)
  Sender: FDA-Public Use
  Company Number: BR-AMGEN-BRASP2012017394

PATIENT
  Age: 66 Year
  Sex: Female
  Weight: 54 kg

DRUGS (3)
  1. RANITIDINE [Suspect]
     Indication: ARTHRITIS
     Dosage: UNK
     Dates: start: 20080101
  2. ENBREL [Suspect]
     Indication: RHEUMATOID ARTHRITIS
     Dosage: 25 MG, WEEKLY
     Route: 058
     Dates: start: 20070401
  3. DIPYRONE INJ [Suspect]
     Indication: ARTHRITIS
     Dosage: UNK
     Dates: start: 20080101

REACTIONS (3)
  - ARTHRITIS [None]
  - PAIN [None]
  - DRUG DEPENDENCE [None]
